FAERS Safety Report 6521284-X (Version None)
Quarter: 2009Q4

REPORT INFORMATION
  Report Type: 
  Country: None (occurrence: None)
  Receive Date: 20091229
  Receipt Date: 20091217
  Transmission Date: 20100525
  Serious: No
  Sender: FDA-Public Use
  Company Number: 20097769

PATIENT
  Sex: Male

DRUGS (1)
  1. LIORESAL [Suspect]
     Indication: MUSCLE SPASTICITY
     Dosage: 100 MCG, DAILY, INTRATHECAL
     Route: 037

REACTIONS (7)
  - ERYTHEMA [None]
  - FEELING ABNORMAL [None]
  - IMPLANT SITE HYPERSENSITIVITY [None]
  - IMPLANT SITE REACTION [None]
  - INFECTION [None]
  - PAIN [None]
  - RASH MACULO-PAPULAR [None]
